FAERS Safety Report 19000138 (Version 3)
Quarter: 2021Q2

REPORT INFORMATION
  Report Type: Spontaneous
  Country: FR (occurrence: FR)
  Receive Date: 20210312
  Receipt Date: 20210405
  Transmission Date: 20210717
  Serious: Yes (Death, Other)
  Sender: FDA-Public Use
  Company Number: FR-BRISTOL-MYERS SQUIBB COMPANY-BMS-2021-021216

PATIENT
  Age: 89 Year
  Sex: Female
  Weight: 70 kg

DRUGS (2)
  1. ECONAZOLE. [Interacting]
     Active Substance: ECONAZOLE NITRATE
     Indication: FUNGAL INFECTION
     Dosage: 1 TO 2 APPLICATIONS
     Route: 003
     Dates: start: 20210126, end: 20210202
  2. COUMADINE [Suspect]
     Active Substance: WARFARIN SODIUM
     Indication: PRODUCT USED FOR UNKNOWN INDICATION
     Dosage: 1 MILLIGRAM
     Route: 065
     Dates: start: 20210105, end: 20210203

REACTIONS (7)
  - Haemorrhagic stroke [Recovered/Resolved]
  - Internal haemorrhage [Fatal]
  - Labelled drug-drug interaction medication error [Recovered/Resolved]
  - Melaena [Recovered/Resolved]
  - International normalised ratio increased [Not Recovered/Not Resolved]
  - General physical health deterioration [Recovered/Resolved]
  - Product monitoring error [Recovered/Resolved]

NARRATIVE: CASE EVENT DATE: 20210202
